FAERS Safety Report 6843386-0 (Version None)
Quarter: 2010Q3

REPORT INFORMATION
  Report Type: 
  Country: None (occurrence: None)
  Receive Date: 20100715
  Receipt Date: 20100707
  Transmission Date: 20110219
  Serious: Yes (Other)
  Sender: FDA-Public Use
  Company Number: IE-BAXTER-2010BH005809

PATIENT
  Age: 8 Month
  Sex: Female
  Weight: 6 kg

DRUGS (9)
  1. GAMMAGARD LIQUID [Suspect]
     Indication: PLATELET TRANSFUSION
     Route: 042
     Dates: start: 20100227, end: 20100227
  2. GAMMAGARD LIQUID [Suspect]
     Route: 042
     Dates: start: 20100228, end: 20100201
  3. SILDENAFIL CITRATE [Concomitant]
     Route: 048
     Dates: start: 20100227
  4. MAGNESIUM GLYCEROPHOSPHATE [Concomitant]
     Route: 048
     Dates: start: 20100227
  5. TAZOCIN [Concomitant]
     Route: 042
  6. DEFIBROTIDE [Concomitant]
     Route: 042
     Dates: start: 20100227
  7. LORAZEPAM [Concomitant]
     Route: 042
     Dates: start: 20100201
  8. VECURONIUM BROMIDE [Concomitant]
     Route: 042
     Dates: start: 20100227, end: 20100227
  9. DOMPERIDONE [Concomitant]
     Route: 042
     Dates: start: 20100228, end: 20100228

REACTIONS (1)
  - ANTI-ERYTHROCYTE ANTIBODY POSITIVE [None]
